FAERS Safety Report 7078143-6 (Version None)
Quarter: 2010Q4

REPORT INFORMATION
  Report Type: 
  Country: None (occurrence: None)
  Receive Date: 20101101
  Receipt Date: 20101101
  Transmission Date: 20110411
  Serious: Yes (Hospitalization)
  Sender: FDA-Public Use
  Company Number: None

PATIENT
  Age: 9 Year
  Sex: Male
  Weight: 24.0406 kg

DRUGS (9)
  1. GAMMAGARD LIQUID [Suspect]
     Indication: HYPOGAMMAGLOBULINAEMIA
     Dosage: 10 GRAM IV EVERY 4 WEEKS +/- 3 DAYS
     Route: 042
     Dates: start: 20100921
  2. ALBUTEROL [Concomitant]
  3. ALLEGRA [Concomitant]
  4. SUSPENSION FLOVENT [Concomitant]
  5. NETIRINSE KIT [Concomitant]
  6. PREVACID [Concomitant]
  7. SOLUTAB [Concomitant]
  8. ALBUTEROL [Concomitant]
  9. CLARITHROMYCIN [Concomitant]

REACTIONS (1)
  - MENINGITIS ASEPTIC [None]
